FAERS Safety Report 8494210-4 (Version None)
Quarter: 2012Q3

REPORT INFORMATION
  Report Type: 
  Country: None (occurrence: None)
  Receive Date: 20120709
  Receipt Date: 20120705
  Transmission Date: 20120928
  Serious: No
  Sender: FDA-Public Use
  Company Number: PHEH2011US009231

PATIENT
  Sex: Female

DRUGS (4)
  1. GILENYA [Suspect]
     Indication: MULTIPLE SCLEROSIS
     Dosage: 0.5 MG, QD
     Route: 048
     Dates: start: 20110714
  2. DIAZEPAM [Concomitant]
     Dosage: 2 MG, UNK
  3. MOBIC [Concomitant]
     Dosage: 7.5 MG, UNK
  4. PROTONIX [Concomitant]
     Indication: GASTROOESOPHAGEAL REFLUX DISEASE
     Dosage: 20 MG, UNK

REACTIONS (10)
  - FAECES DISCOLOURED [None]
  - HYPOAESTHESIA [None]
  - SKIN INFECTION [None]
  - DIARRHOEA [None]
  - ONYCHOMADESIS [None]
  - MALAISE [None]
  - SKIN LESION [None]
  - GASTROINTESTINAL HYPERMOTILITY [None]
  - GASTROOESOPHAGEAL REFLUX DISEASE [None]
  - URINARY TRACT INFECTION [None]
